FAERS Safety Report 8556786-8 (Version None)
Quarter: 2012Q3

REPORT INFORMATION
  Report Type: 
  Country: None (occurrence: None)
  Receive Date: 20120801
  Receipt Date: 20120724
  Transmission Date: 20120928
  Serious: Yes (Hospitalization, Other)
  Sender: FDA-Public Use
  Company Number: FR-NOVOPROD-356785

PATIENT
  Age: 77 Year
  Sex: Female
  Weight: 80 kg

DRUGS (10)
  1. VICTOZA [Suspect]
     Dosage: 1.2 MG, QD
     Route: 058
  2. LERCANIDIPINE [Concomitant]
  3. FENOFIBRATE [Concomitant]
  4. METFORMIN HCL [Concomitant]
  5. VICTOZA [Suspect]
     Indication: TYPE 2 DIABETES MELLITUS
     Dosage: 0.6 MG, QD
     Route: 058
     Dates: start: 20120118
  6. VICTOZA [Suspect]
     Dosage: 0.6 MG, QD
     Route: 058
     Dates: end: 20120410
  7. INSULATARD NPH HUMAN [Concomitant]
  8. COVERSYL                           /00790702/ [Concomitant]
  9. INDAPAMIDE [Concomitant]
  10. ASPIRIN [Concomitant]

REACTIONS (8)
  - NAUSEA [None]
  - HYPOKALAEMIA [None]
  - ABDOMINAL PAIN [None]
  - OESOPHAGEAL ULCER [None]
  - VOMITING [None]
  - OESOPHAGEAL ADENOCARCINOMA [None]
  - CONSTIPATION [None]
  - ABDOMINAL PAIN UPPER [None]
